FAERS Safety Report 5771310-0 (Version None)
Quarter: 2008Q2

REPORT INFORMATION
  Report Type: 
  Country: None (occurrence: None)
  Receive Date: 20080613
  Receipt Date: 20080605
  Transmission Date: 20081010
  Serious: Yes (Hospitalization, Other)
  Sender: FDA-Public Use
  Company Number: US-BAYER-200824911NA

PATIENT
  Age: 20 Year
  Sex: Female
  Weight: 52 kg

DRUGS (3)
  1. YAZ [Suspect]
     Indication: ACNE
     Route: 048
     Dates: start: 20080401, end: 20080602
  2. TYLENOL (CAPLET) [Concomitant]
     Indication: ABDOMINAL PAIN LOWER
     Route: 048
  3. MACROBID [Concomitant]
     Indication: URINARY TRACT INFECTION

REACTIONS (10)
  - BACK PAIN [None]
  - CHEST PAIN [None]
  - DYSPNOEA [None]
  - FLANK PAIN [None]
  - MUSCULOSKELETAL PAIN [None]
  - PAINFUL RESPIRATION [None]
  - PELVIC VENOUS THROMBOSIS [None]
  - PULMONARY THROMBOSIS [None]
  - UNEVALUABLE EVENT [None]
  - URINARY TRACT INFECTION [None]
